FAERS Safety Report 8145009-X (Version None)
Quarter: 2012Q1

REPORT INFORMATION
  Report Type: 
  Country: None (occurrence: None)
  Receive Date: 20120217
  Receipt Date: 20120207
  Transmission Date: 20120608
  Serious: Yes (Other)
  Sender: FDA-Public Use
  Company Number: PHHY2012PL012700

PATIENT
  Age: 59 Year
  Sex: Female

DRUGS (5)
  1. SOLU-MEDROL [Concomitant]
  2. METYPRED ^UNS^ [Concomitant]
  3. CYCLOSPORINE [Suspect]
     Indication: RENAL TRANSPLANT
     Dosage: 600 MG, UNK
  4. MYFORTIC [Suspect]
     Indication: RENAL TRANSPLANT
     Dosage: 1440 MG, UNK
  5. PREDNISONE [Concomitant]

REACTIONS (3)
  - CYTOMEGALOVIRUS INFECTION [None]
  - COMPLICATIONS OF TRANSPLANTED KIDNEY [None]
  - ESCHERICHIA URINARY TRACT INFECTION [None]
